FAERS Safety Report 8530281-4 (Version None)
Quarter: 2012Q3

REPORT INFORMATION
  Report Type: 
  Country: None (occurrence: None)
  Receive Date: 20120723
  Receipt Date: 20120716
  Transmission Date: 20120928
  Serious: Yes (Hospitalization, Other)
  Sender: FDA-Public Use
  Company Number: HU-JNJFOC-20120703526

PATIENT
  Age: 50 Year
  Sex: Male

DRUGS (5)
  1. REMICADE [Suspect]
     Indication: ANKYLOSING SPONDYLITIS
     Route: 042
  2. AZULFIDINE [Suspect]
     Indication: ANKYLOSING SPONDYLITIS
     Route: 065
  3. FENOFIBRATE [Concomitant]
     Indication: HYPERLIPIDAEMIA
     Route: 065
  4. EZETIMIBE [Concomitant]
     Indication: HYPERLIPIDAEMIA
     Route: 065
  5. ATORVASTATIN [Concomitant]
     Indication: HYPERLIPIDAEMIA
     Route: 065

REACTIONS (2)
  - PANCREATITIS ACUTE [None]
  - PANCREATIC PSEUDOCYST [None]
